FAERS Safety Report 20876498 (Version 3)
Quarter: 2022Q2

REPORT INFORMATION
  Report Type: Other
  Country: AR (occurrence: AR)
  Receive Date: 20220526
  Receipt Date: 20220629
  Transmission Date: 20220721
  Serious: Yes (Hospitalization)
  Sender: FDA-Public Use
  Company Number: AR-002147023-NVSC2022AR111467

PATIENT
  Age: 70 Year
  Sex: Male

DRUGS (2)
  1. XOLAIR [Suspect]
     Active Substance: OMALIZUMAB
     Indication: Asthma
     Dosage: 450 MG, QMO
     Route: 058
     Dates: start: 20090101
  2. XOLAIR [Suspect]
     Active Substance: OMALIZUMAB
     Indication: Asthma
     Route: 065

REACTIONS (6)
  - Asthma [Unknown]
  - Asthmatic crisis [Unknown]
  - Bronchiectasis [Unknown]
  - Pneumonia [Unknown]
  - Memory impairment [Unknown]
  - Inappropriate schedule of product administration [Unknown]

NARRATIVE: CASE EVENT DATE: 20220101
